FAERS Safety Report 12522274 (Version 2)
Quarter: 2016Q3

REPORT INFORMATION
  Report Type: Spontaneous
  Country: CN (occurrence: CN)
  Receive Date: 20160701
  Receipt Date: 20160719
  Transmission Date: 20161109
  Serious: Yes (Hospitalization)
  Sender: FDA-Public Use
  Company Number: CN-UCBSA-2016024168

PATIENT
  Age: 21 Year
  Sex: Male
  Weight: 74 kg

DRUGS (7)
  1. LAMICTAL [Suspect]
     Active Substance: LAMOTRIGINE
     Dosage: 2X/DAY (BID), 12.5 MG IN THE MORNING AND 25 MG IN THE EVENING
     Route: 048
     Dates: start: 20160614
  2. TOPAMAX [Suspect]
     Active Substance: TOPIRAMATE
     Indication: TEMPORAL LOBE EPILEPSY
     Dosage: UNK
  3. KEPPRA [Suspect]
     Active Substance: LEVETIRACETAM
     Indication: TEMPORAL LOBE EPILEPSY
     Dosage: UNK
     Dates: end: 20160603
  4. LAMICTAL [Suspect]
     Active Substance: LAMOTRIGINE
     Indication: TEMPORAL LOBE EPILEPSY
     Dosage: 12.5 MG, ONCE DAILY (QD), 50 MG
     Route: 048
     Dates: start: 20160603, end: 201606
  5. VALPROIC ACID. [Suspect]
     Active Substance: VALPROIC ACID
     Dosage: 0.5 MG, ONCE DAILY (QD)
     Dates: start: 20160603
  6. VALPROIC ACID. [Suspect]
     Active Substance: VALPROIC ACID
     Indication: TEMPORAL LOBE EPILEPSY
     Dosage: UNKNOWN DOSE
  7. LAMICTAL [Suspect]
     Active Substance: LAMOTRIGINE
     Dosage: 12.5 MG, 2X/DAY (BID)
     Route: 048
     Dates: start: 20160608, end: 201606

REACTIONS (2)
  - Drug ineffective [Unknown]
  - Lymphadenopathy [Recovering/Resolving]

NARRATIVE: CASE EVENT DATE: 20160618
